FAERS Safety Report 17578984 (Version 3)
Quarter: 2020Q2

REPORT INFORMATION
  Report Type: Report from Study
  Country: US (occurrence: US)
  Receive Date: 20200324
  Receipt Date: 20200531
  Transmission Date: 20200713
  Serious: Yes (Hospitalization)
  Sender: FDA-Public Use
  Company Number: US-BIOGEN-2020BI00826756

PATIENT
  Age: 29 Year
  Sex: Female
  Weight: 123.03 kg

DRUGS (7)
  1. TECFIDERA [Suspect]
     Active Substance: DIMETHYL FUMARATE
     Route: 065
     Dates: start: 20200316
  2. TECFIDERA [Suspect]
     Active Substance: DIMETHYL FUMARATE
     Route: 048
     Dates: start: 202001, end: 202004
  3. TECFIDERA [Suspect]
     Active Substance: DIMETHYL FUMARATE
     Route: 048
     Dates: start: 20191230
  4. TECFIDERA [Suspect]
     Active Substance: DIMETHYL FUMARATE
     Indication: MULTIPLE SCLEROSIS
     Dosage: STARTING DOSE
     Route: 048
     Dates: start: 20191230, end: 20200102
  5. TECFIDERA [Suspect]
     Active Substance: DIMETHYL FUMARATE
     Route: 048
     Dates: start: 20200119
  6. TECFIDERA [Suspect]
     Active Substance: DIMETHYL FUMARATE
     Route: 065
  7. TECFIDERA [Suspect]
     Active Substance: DIMETHYL FUMARATE
     Dosage: MAINTENANCE DOSE
     Route: 048
     Dates: start: 202001

REACTIONS (28)
  - Contusion [Not Recovered/Not Resolved]
  - Body temperature increased [Unknown]
  - Multiple sclerosis relapse [Unknown]
  - Rash macular [Unknown]
  - Abdominal discomfort [Not Recovered/Not Resolved]
  - Diarrhoea [Not Recovered/Not Resolved]
  - Dizziness [Not Recovered/Not Resolved]
  - Blindness unilateral [Unknown]
  - Loss of control of legs [Unknown]
  - Hypoaesthesia [Unknown]
  - Formication [Unknown]
  - Decreased appetite [Unknown]
  - Balance disorder [Unknown]
  - Muscle spasms [Unknown]
  - Muscle tightness [Unknown]
  - Burning sensation [Unknown]
  - Vision blurred [Not Recovered/Not Resolved]
  - Flatulence [Unknown]
  - Asthenia [Not Recovered/Not Resolved]
  - Mobility decreased [Unknown]
  - Nausea [Recovered/Resolved with Sequelae]
  - Pain in extremity [Not Recovered/Not Resolved]
  - Arthritis [Unknown]
  - Fatigue [Unknown]
  - Arthralgia [Not Recovered/Not Resolved]
  - Hot flush [Unknown]
  - Abdominal pain upper [Not Recovered/Not Resolved]
  - Epigastric discomfort [Recovered/Resolved with Sequelae]

NARRATIVE: CASE EVENT DATE: 20191230
